FAERS Safety Report 17434552 (Version 1)
Quarter: 2020Q1

REPORT INFORMATION
  Report Type: Spontaneous
  Country: CA (occurrence: CA)
  Receive Date: 20200219
  Receipt Date: 20200219
  Transmission Date: 20200409
  Serious: Yes (Other)
  Sender: FDA-Public Use
  Company Number: CA-GILEAD-2020-0451625

PATIENT
  Age: 89 Year
  Sex: Female

DRUGS (5)
  1. SPIRONOLACTONE. [Suspect]
     Active Substance: SPIRONOLACTONE
     Indication: PAIN IN EXTREMITY
  2. LASIX [Suspect]
     Active Substance: FUROSEMIDE
     Indication: PRODUCT USED FOR UNKNOWN INDICATION
     Dosage: UNK
     Route: 065
  3. SPIRONOLACTONE. [Suspect]
     Active Substance: SPIRONOLACTONE
     Indication: PERIPHERAL SWELLING
     Dosage: UNK
     Route: 065
  4. AMBRISENTAN [Suspect]
     Active Substance: AMBRISENTAN
     Indication: PULMONARY ARTERIAL HYPERTENSION
     Dosage: UNK
     Route: 065
     Dates: start: 20200123
  5. ADCIRCA [Suspect]
     Active Substance: TADALAFIL
     Indication: PRODUCT USED FOR UNKNOWN INDICATION
     Dosage: UNK
     Route: 065

REACTIONS (13)
  - Dementia [Recovering/Resolving]
  - Pemphigoid [Recovering/Resolving]
  - Confusional state [Recovering/Resolving]
  - Arthralgia [Recovering/Resolving]
  - Hypoacusis [Recovering/Resolving]
  - Blister [Recovering/Resolving]
  - Urinary tract infection [Recovering/Resolving]
  - Joint swelling [Recovering/Resolving]
  - Flushing [Recovering/Resolving]
  - Hair colour changes [Recovering/Resolving]
  - Rash [Recovering/Resolving]
  - Skin disorder [Recovering/Resolving]
  - Visual impairment [Recovering/Resolving]

NARRATIVE: CASE EVENT DATE: 201908
